FAERS Safety Report 10285966 (Version 2)
Quarter: 2014Q3

REPORT INFORMATION
  Report Type: Report from Study
  Country: AU (occurrence: AU)
  Receive Date: 20140709
  Receipt Date: 20140829
  Transmission Date: 20150326
  Serious: Yes (Hospitalization, Other)
  Sender: FDA-Public Use
  Company Number: PHHY2014AU084105

PATIENT
  Age: 52 Year
  Sex: Male

DRUGS (1)
  1. ACLASTA [Suspect]
     Active Substance: ZOLEDRONIC ACID
     Dosage: 5 MG, UNK
     Route: 042
     Dates: start: 2012

REACTIONS (3)
  - Circulatory collapse [Recovered/Resolved]
  - Crohn^s disease [Unknown]
  - Convulsion [Unknown]

NARRATIVE: CASE EVENT DATE: 20140413
